FAERS Safety Report 6717040-X (Version None)
Quarter: 2010Q2

REPORT INFORMATION
  Report Type: 
  Country: None (occurrence: None)
  Receive Date: 20100510
  Receipt Date: 20100510
  Transmission Date: 20101027
  Serious: Yes (Other)
  Sender: FDA-Public Use
  Company Number: None

PATIENT
  Age: 6 Year
  Sex: Female
  Weight: 23.587 kg

DRUGS (1)
  1. CONCENTRATED TYLENOL INFANT DROPS [Suspect]
     Indication: ANTIPYRESIS
     Dosage: 1.6ML ONCE PO
     Route: 048
     Dates: start: 20100507, end: 20100507

REACTIONS (3)
  - FEBRILE CONVULSION [None]
  - PRODUCT QUALITY ISSUE [None]
  - RESPIRATORY ARREST [None]
